FAERS Safety Report 14402084 (Version 1)
Quarter: 2018Q1

REPORT INFORMATION
  Report Type: Spontaneous
  Country: ES (occurrence: ES)
  Receive Date: 20180117
  Receipt Date: 20180117
  Transmission Date: 20180509
  Serious: Yes (Hospitalization, Other)
  Sender: FDA-Public Use
  Company Number: ES-009507513-1712ESP014056

PATIENT
  Age: 62 Year
  Sex: Female
  Weight: 54 kg

DRUGS (3)
  1. KEYTRUDA [Suspect]
     Active Substance: PEMBROLIZUMAB
     Indication: NON-SMALL CELL LUNG CANCER STAGE IV
     Dosage: 200 MG, 21 DAYS, CYCLE 1
     Route: 042
     Dates: start: 20171129, end: 20171129
  2. OMEPRAZOLE. [Concomitant]
     Active Substance: OMEPRAZOLE
     Dosage: 20 MG/DAY
     Route: 048
  3. RILAST [Concomitant]
     Active Substance: BUDESONIDE\FORMOTEROL
     Dosage: 2 INHALATIONS/ 12H
     Route: 055

REACTIONS (3)
  - Cholestasis [Unknown]
  - Hypertransaminasaemia [Unknown]
  - Pneumonia [Recovered/Resolved with Sequelae]

NARRATIVE: CASE EVENT DATE: 20171219
